FAERS Safety Report 13100678 (Version 1)
Quarter: 2017Q1

REPORT INFORMATION
  Report Type: Spontaneous
  Country: US (occurrence: US)
  Receive Date: 20170109
  Receipt Date: 20170109
  Transmission Date: 20170428
  Serious: Yes (Hospitalization)
  Sender: FDA-Public Use
  Company Number: None

PATIENT
  Age: 64 Year
  Sex: Male
  Weight: 95 kg

DRUGS (1)
  1. BUMETANIDE. [Suspect]
     Active Substance: BUMETANIDE
     Indication: CARDIAC FAILURE CONGESTIVE
     Route: 048
     Dates: start: 20160701

REACTIONS (6)
  - Polyuria [None]
  - Malaise [None]
  - Hypovolaemia [None]
  - Abdominal pain [None]
  - Weight decreased [None]
  - Acute kidney injury [None]

NARRATIVE: CASE EVENT DATE: 20161220
